FAERS Safety Report 6169071-9 (Version None)
Quarter: 2009Q2

REPORT INFORMATION
  Report Type: 
  Country: None (occurrence: None)
  Receive Date: 20090427
  Receipt Date: 20090415
  Transmission Date: 20091009
  Serious: Yes (Other)
  Sender: FDA-Public Use
  Company Number: JP-PFIZER INC-2009199955

PATIENT

DRUGS (1)
  1. CORTRIL [Suspect]
     Indication: ISOLATED ADRENOCORTICOTROPIC HORMONE DEFICIENCY
     Dosage: UNK
     Route: 048
     Dates: start: 20080101

REACTIONS (3)
  - ALTERED STATE OF CONSCIOUSNESS [None]
  - ASCITES [None]
  - HALLUCINATION, VISUAL [None]
